FAERS Safety Report 24546314 (Version 1)
Quarter: 2024Q4

REPORT INFORMATION
  Report Type: Other
  Country: IN (occurrence: IN)
  Receive Date: 20241024
  Receipt Date: 20241024
  Transmission Date: 20250115
  Serious: Yes (Other)
  Sender: NUVO PHARMACEUTICALS
  Company Number: IN-Nuvo Pharmaceuticals Inc-2163292

PATIENT
  Sex: Female

DRUGS (15)
  1. NAPROXEN [Suspect]
     Active Substance: NAPROXEN
     Indication: Migraine
     Dates: start: 202201
  2. SUMATRIPTAN [Suspect]
     Active Substance: SUMATRIPTAN
     Dates: start: 202201
  3. IBUPROFEN [Suspect]
     Active Substance: IBUPROFEN
  4. FLUNARIZINE [Suspect]
     Active Substance: FLUNARIZINE
  5. PREDNISOLONE [Suspect]
     Active Substance: PREDNISOLONE
  6. NAPROXEN\SUMATRIPTAN SUCCINATE [Suspect]
     Active Substance: NAPROXEN\SUMATRIPTAN SUCCINATE
  7. ACETAMINOPHEN\CAFFEINE\ERGOTAMINE\PROCHLORPERAZINE [Suspect]
     Active Substance: ACETAMINOPHEN\CAFFEINE\ERGOTAMINE\PROCHLORPERAZINE
  8. PROPRANOLOL [Suspect]
     Active Substance: PROPRANOLOL HYDROCHLORIDE
  9. DICLOFENAC SODIUM [Suspect]
     Active Substance: DICLOFENAC SODIUM
  10. VALPROATE SODIUM [Suspect]
     Active Substance: VALPROATE SODIUM
  11. AMITRIPTYLINE HYDROCHLORIDE [Suspect]
     Active Substance: AMITRIPTYLINE HYDROCHLORIDE
  12. ERGOTAMINE [Suspect]
     Active Substance: CAFFEINE\ERGOTAMINE\ERGOTAMINE TARTRATE
     Dates: start: 2022
  13. RIZATRIPTAN [Suspect]
     Active Substance: RIZATRIPTAN
  14. TRAMADOL [Suspect]
     Active Substance: TRAMADOL
  15. TOPIRAMATE [Suspect]
     Active Substance: TOPIRAMATE

REACTIONS (2)
  - Serotonin syndrome [Recovered/Resolved]
  - Drug ineffective for unapproved indication [Unknown]
